FAERS Safety Report 15499562 (Version 1)
Quarter: 2018Q4

REPORT INFORMATION
  Report Type: Spontaneous
  Country: US (occurrence: US)
  Receive Date: 20181015
  Receipt Date: 20181015
  Transmission Date: 20190205
  Serious: Yes (Hospitalization, Other)
  Sender: FDA-Public Use
  Company Number: US-JUBILANT CADISTA PHARMACEUTICALS-2018JUB00413

PATIENT
  Age: 65 Year
  Sex: Female
  Weight: 61.22 kg

DRUGS (8)
  1. PRESERVISION AREDS 2 [Concomitant]
     Active Substance: MINERALS\VITAMINS
  2. HYDROCHLOROTHIAZIDE. [Concomitant]
     Active Substance: HYDROCHLOROTHIAZIDE
  3. PANTOPRAZOLE SODIUM. [Suspect]
     Active Substance: PANTOPRAZOLE SODIUM
     Indication: GASTROOESOPHAGEAL REFLUX DISEASE
     Dosage: 40 MG, 1X/DAY
     Route: 048
     Dates: start: 20171001
  4. AMLODIPINE BESYLATE. [Concomitant]
     Active Substance: AMLODIPINE BESYLATE
  5. SYNTHROID [Concomitant]
     Active Substance: LEVOTHYROXINE SODIUM
  6. FISH OIL [Concomitant]
     Active Substance: FISH OIL
  7. CENTRUM SILVER MULTIVITAMIN [Concomitant]
  8. RANITIDINE. [Concomitant]
     Active Substance: RANITIDINE

REACTIONS (12)
  - Intervertebral disc disorder [Recovering/Resolving]
  - Diarrhoea [Recovering/Resolving]
  - Dizziness [Recovering/Resolving]
  - Fall [Recovering/Resolving]
  - Pollakiuria [Recovering/Resolving]
  - Presyncope [Recovering/Resolving]
  - Malaise [Recovering/Resolving]
  - Amnesia [Recovering/Resolving]
  - Asthenia [Recovering/Resolving]
  - Loss of consciousness [Recovering/Resolving]
  - Foreign body in gastrointestinal tract [Recovering/Resolving]
  - Headache [Recovering/Resolving]

NARRATIVE: CASE EVENT DATE: 201806
